FAERS Safety Report 8588235 (Version 2)
Quarter: 2013Q1

REPORT INFORMATION
  Report Type: Spontaneous
  Country: JP (occurrence: JP)
  Receive Date: 20120531
  Receipt Date: 20130125
  Transmission Date: 20140127
  Serious: Yes (Hospitalization)
  Sender: FDA-Public Use
  Company Number: PHHY2011JP112751

PATIENT
  Sex: Female

DRUGS (3)
  1. TASIGNA [Suspect]
     Indication: CHRONIC MYELOID LEUKAEMIA
     Dosage: 400 MG, DAILY
     Route: 048
     Dates: start: 20090702
  2. TASIGNA [Suspect]
     Dosage: 800 MG, DAILY
     Route: 048
     Dates: start: 20100710, end: 20110106
  3. TASIGNA [Suspect]
     Dosage: 400 MG, DAILY
     Route: 048
     Dates: start: 20110303, end: 20110516

REACTIONS (8)
  - Cardiac failure [Recovered/Resolved]
  - Electrocardiogram ST segment depression [Unknown]
  - Respiratory disorder [Recovering/Resolving]
  - Cardiomegaly [Unknown]
  - Atrial fibrillation [Unknown]
  - Pleural effusion [Recovered/Resolved]
  - Tachycardia [Unknown]
  - Pulmonary oedema [Recovering/Resolving]
